FAERS Safety Report 9859728 (Version 2)
Quarter: 2015Q1

REPORT INFORMATION
  Report Type: Spontaneous
  Country: MX (occurrence: MX)
  Receive Date: 20140131
  Receipt Date: 20150312
  Transmission Date: 20150721
  Serious: Yes (Death, Hospitalization)
  Sender: FDA-Public Use
  Company Number: MX-PFIZER INC-2014029550

PATIENT
  Age: 80 Year
  Sex: Female
  Weight: 60 kg

DRUGS (3)
  1. LYRICA [Suspect]
     Active Substance: PREGABALIN
     Indication: FRACTURE
     Dosage: UNK
     Dates: start: 2012
  2. TRADOL [Concomitant]
     Active Substance: TRAMADOL HYDROCHLORIDE
     Indication: PAIN
     Dosage: UNK, 3X/DAY
     Dates: start: 2012
  3. CELEBREX [Suspect]
     Active Substance: CELECOXIB
     Indication: FRACTURE
     Dosage: UNK
     Dates: start: 2012

REACTIONS (2)
  - Off label use [Unknown]
  - Pulmonary fibrosis [Fatal]
